FAERS Safety Report 11803363 (Version 6)
Quarter: 2016Q2

REPORT INFORMATION
  Report Type: Report from Study
  Country: JP (occurrence: JP)
  Receive Date: 20151204
  Receipt Date: 20160526
  Transmission Date: 20160815
  Serious: Yes (Hospitalization)
  Sender: FDA-Public Use
  Company Number: JP-EISAI MEDICAL RESEARCH-EC-2015-012483

PATIENT
  Age: 59 Year
  Sex: Male
  Weight: 93 kg

DRUGS (34)
  1. AFINITOR [Suspect]
     Active Substance: EVEROLIMUS
     Route: 048
     Dates: start: 20160120
  2. JANUVIA [Concomitant]
     Active Substance: SITAGLIPTIN PHOSPHATE
  3. LEVOFLOXACIN HEMIHYDRATE [Concomitant]
     Active Substance: LEVOFLOXACIN
  4. TENORMIN [Concomitant]
     Active Substance: ATENOLOL
  5. PRIMPERAN [Concomitant]
     Active Substance: METOCLOPRAMIDE HYDROCHLORIDE
  6. CELECOX [Concomitant]
     Active Substance: CELECOXIB
  7. GASMOTIN [Concomitant]
     Active Substance: MOSAPRIDE CITRATE
  8. AZUNOL GARGLE LIQUID [Concomitant]
  9. AZUNOL [Concomitant]
     Active Substance: SODIUM GUALENATE
  10. LENVATINIB [Suspect]
     Active Substance: LENVATINIB
     Route: 048
     Dates: start: 20160120
  11. AFINITOR [Suspect]
     Active Substance: EVEROLIMUS
     Route: 048
     Dates: start: 20151229, end: 20160113
  12. LANSOPRAZOLE. [Concomitant]
     Active Substance: LANSOPRAZOLE
  13. LYRICA [Concomitant]
     Active Substance: PREGABALIN
  14. RANMARK [Concomitant]
     Active Substance: DENOSUMAB
  15. DERMOVATE [Concomitant]
     Active Substance: CLOBETASOL
  16. FLUITRAN [Concomitant]
     Active Substance: TRICHLORMETHIAZIDE
  17. LENDORMIN D [Concomitant]
     Active Substance: BROTIZOLAM
  18. CALONAL [Concomitant]
     Active Substance: ACETAMINOPHEN
  19. DENOTAS [Concomitant]
     Active Substance: CALCIUM CARBONATE\CHOLECALCIFEROL\MAGNESIUM CARBONATE
  20. GENTACIN [Concomitant]
     Active Substance: GENTAMICIN SULFATE
  21. AMLODIPINE [Concomitant]
     Active Substance: AMLODIPINE BESYLATE
  22. PURSENNID [Concomitant]
     Active Substance: SENNOSIDES A AND B
  23. HIRUDOID [Concomitant]
     Active Substance: GLYCOSAMINOGLYCANS
  24. MAGLAX [Concomitant]
     Active Substance: MAGNESIUM OXIDE
  25. OXINORM [Concomitant]
     Active Substance: OXYCODONE HYDROCHLORIDE
  26. MOHRUS TAPE [Concomitant]
     Active Substance: KETOPROFEN
  27. INDOMETACIN [Concomitant]
     Active Substance: INDOMETHACIN
  28. BLOPRESS [Concomitant]
     Active Substance: CANDESARTAN CILEXETIL
  29. OXYCODONE [Concomitant]
     Active Substance: OXYCODONE
  30. LENVATINIB [Suspect]
     Active Substance: LENVATINIB
     Indication: RENAL CELL CARCINOMA
     Route: 048
     Dates: start: 20151021, end: 20151124
  31. LENVATINIB [Suspect]
     Active Substance: LENVATINIB
     Route: 048
     Dates: start: 20151229, end: 20160113
  32. AFINITOR [Suspect]
     Active Substance: EVEROLIMUS
     Indication: RENAL CELL CARCINOMA
     Route: 048
     Dates: start: 20151021, end: 20151124
  33. LIPITOR [Concomitant]
     Active Substance: ATORVASTATIN CALCIUM
  34. AMARYL [Concomitant]
     Active Substance: GLIMEPIRIDE

REACTIONS (2)
  - Decreased appetite [Recovering/Resolving]
  - Dehydration [Recovered/Resolved]

NARRATIVE: CASE EVENT DATE: 20151127
